FAERS Safety Report 15244502 (Version 1)
Quarter: 2018Q3

REPORT INFORMATION
  Report Type: Spontaneous
  Country: US (occurrence: US)
  Receive Date: 20180712
  Receipt Date: 20180712
  Transmission Date: 20181010
  Serious: Yes (Other)
  Sender: FDA-Public Use
  Company Number: None

PATIENT
  Age: 35 Year
  Sex: Female
  Weight: 55.79 kg

DRUGS (1)
  1. PARAGARD T 380A [Suspect]
     Active Substance: COPPER

REACTIONS (12)
  - Device expulsion [None]
  - Sinus tachycardia [None]
  - Weight increased [None]
  - Presyncope [None]
  - Acne cystic [None]
  - Abdominal distension [None]
  - Dyspnoea [None]
  - Loss of personal independence in daily activities [None]
  - Toxicity to various agents [None]
  - Dizziness [None]
  - Fatigue [None]
  - Muscle spasms [None]

NARRATIVE: CASE EVENT DATE: 20180606
